FAERS Safety Report 15777402 (Version 1)
Quarter: 2018Q4

REPORT INFORMATION
  Report Type: Report from Study
  Country: US (occurrence: US)
  Receive Date: 20181231
  Receipt Date: 20181231
  Transmission Date: 20190205
  Serious: Yes (Other)
  Sender: FDA-Public Use
  Company Number: US-CLOVIS ONCOLOGY-CLO-2018-001673

PATIENT
  Age: 63 Year
  Sex: Female

DRUGS (1)
  1. RUBRACA [Suspect]
     Active Substance: RUCAPARIB CAMSYLATE
     Indication: OVARIAN CANCER
     Dosage: 600 MG, BID
     Route: 048
     Dates: start: 20181030

REACTIONS (11)
  - Fatigue [Unknown]
  - Leukopenia [Unknown]
  - Cognitive disorder [Unknown]
  - Diarrhoea [Recovering/Resolving]
  - Nausea [Recovering/Resolving]
  - Asthenia [Unknown]
  - Vomiting [Recovered/Resolved]
  - Depression [Unknown]
  - Urticaria [Recovered/Resolved]
  - Tumour marker increased [Unknown]
  - Anaemia [Unknown]

NARRATIVE: CASE EVENT DATE: 2018
